FAERS Safety Report 4667607-8 (Version None)
Quarter: 2005Q2

REPORT INFORMATION
  Report Type: 
  Country: None (occurrence: None)
  Receive Date: 20050520
  Receipt Date: 20050509
  Transmission Date: 20051028
  Serious: Yes (Hospitalization)
  Sender: FDA-Public Use
  Company Number: GBWYE654410MAY05

PATIENT
  Age: 51 Year
  Sex: Male

DRUGS (6)
  1. ENBREL [Suspect]
     Indication: DRUG USE FOR UNKNOWN INDICATION
     Dosage: UNKNOWN
     Route: 058
     Dates: start: 20050101, end: 20050101
  2. INFLIXIMAB [Suspect]
     Route: 065
  3. METHOTREXATE [Concomitant]
  4. PREDNISOLONE [Concomitant]
  5. NAPROXEN [Concomitant]
  6. FOLIC ACID [Concomitant]

REACTIONS (2)
  - CONDITION AGGRAVATED [None]
  - TUBERCULOSIS [None]
